FAERS Safety Report 17628677 (Version 1)
Quarter: 2020Q2

REPORT INFORMATION
  Report Type: Report from Study
  Country: None (occurrence: US)
  Receive Date: 20200406
  Receipt Date: 20200406
  Transmission Date: 20200713
  Serious: Yes (Hospitalization, Congenital Anomaly)
  Sender: FDA-Public Use
  Company Number: US-ABBVIE-19K-163-2966506-00

PATIENT
  Sex: Male
  Weight: 124.85 kg

DRUGS (5)
  1. HUMIRA [Suspect]
     Active Substance: ADALIMUMAB
     Route: 058
     Dates: start: 20200321
  2. HUMIRA [Suspect]
     Active Substance: ADALIMUMAB
     Indication: RHEUMATOID ARTHRITIS
     Route: 058
     Dates: start: 201706, end: 201707
  3. PREDNISONE. [Concomitant]
     Active Substance: PREDNISONE
     Indication: PRODUCT USED FOR UNKNOWN INDICATION
  4. METHOTREXATE. [Concomitant]
     Active Substance: METHOTREXATE
     Indication: PRODUCT USED FOR UNKNOWN INDICATION
  5. HUMIRA [Suspect]
     Active Substance: ADALIMUMAB
     Route: 058
     Dates: start: 201910

REACTIONS (23)
  - Paralysis [Not Recovered/Not Resolved]
  - Visual impairment [Recovering/Resolving]
  - Skin ulcer [Recovered/Resolved]
  - Injection site rash [Recovered/Resolved]
  - Pneumonia [Recovering/Resolving]
  - Animal bite [Recovered/Resolved]
  - Hallucination [Not Recovered/Not Resolved]
  - Chills [Not Recovered/Not Resolved]
  - Muscular weakness [Not Recovered/Not Resolved]
  - Wound [Recovered/Resolved]
  - Dysstasia [Recovering/Resolving]
  - Arthropathy [Recovered/Resolved]
  - Nerve injury [Recovered/Resolved]
  - Injection site erythema [Recovered/Resolved]
  - Hospitalisation [Recovering/Resolving]
  - Fall [Not Recovered/Not Resolved]
  - Asthenia [Recovered/Resolved]
  - Amnesia [Recovering/Resolving]
  - Herpes zoster [Recovering/Resolving]
  - Dyspnoea [Recovered/Resolved]
  - Joint swelling [Recovered/Resolved]
  - Penis disorder [Not Recovered/Not Resolved]
  - Atrophy [Not Recovered/Not Resolved]

NARRATIVE: CASE EVENT DATE: 2017
